FAERS Safety Report 13619198 (Version 1)
Quarter: 2017Q2

REPORT INFORMATION
  Report Type: Spontaneous
  Country: US (occurrence: US)
  Receive Date: 20170606
  Receipt Date: 20170606
  Transmission Date: 20170830
  Serious: No
  Sender: FDA-Public Use
  Company Number: US-AMGEN-USASP2016153442

PATIENT
  Age: 64 Year
  Sex: Male
  Weight: 89.8 kg

DRUGS (5)
  1. NOVOLOG [Concomitant]
     Active Substance: INSULIN ASPART
     Indication: DIABETES MELLITUS
     Dosage: UNK
  2. PROCRIT [Suspect]
     Active Substance: ERYTHROPOIETIN
     Dosage: 0.5 ML, QWK (STRENGTH 20,000 UNIT)
     Route: 058
     Dates: start: 201609, end: 2016
  3. LANTUS [Concomitant]
     Active Substance: INSULIN GLARGINE
     Indication: DIABETES MELLITUS
     Dosage: UNK
  4. PROCRIT [Suspect]
     Active Substance: ERYTHROPOIETIN
     Indication: ANAEMIA
     Dosage: 0.5 ML, QWK (STRENGTH 20,000 UNIT)
     Route: 058
     Dates: start: 2016, end: 2016
  5. PROCRIT [Suspect]
     Active Substance: ERYTHROPOIETIN
     Dosage: 0.4 ML, QWK (STRENGTH 20,000 UNIT)
     Route: 058
     Dates: start: 20161028

REACTIONS (2)
  - Drug dose omission [Not Recovered/Not Resolved]
  - Haemoglobin increased [Unknown]

NARRATIVE: CASE EVENT DATE: 2016
